FAERS Safety Report 11617610 (Version 1)
Quarter: 2015Q4

REPORT INFORMATION
  Report Type: Spontaneous
  Country: BR (occurrence: BR)
  Receive Date: 20151009
  Receipt Date: 20151009
  Transmission Date: 20160304
  Serious: Yes (Hospitalization)
  Sender: FDA-Public Use
  Company Number: BR-SA-2015SA150596

PATIENT
  Sex: Male
  Weight: 3.55 kg

DRUGS (1)
  1. CLEXANE [Suspect]
     Active Substance: ENOXAPARIN SODIUM
     Route: 064
     Dates: start: 201502, end: 201503

REACTIONS (3)
  - Meconium aspiration syndrome [Recovered/Resolved]
  - Streptococcal infection [Recovered/Resolved]
  - Foetal exposure during pregnancy [Unknown]

NARRATIVE: CASE EVENT DATE: 201507
